FAERS Safety Report 12980550 (Version 1)
Quarter: 2016Q4

REPORT INFORMATION
  Report Type: Report from Study
  Country: None (occurrence: US)
  Receive Date: 20161128
  Receipt Date: 20161128
  Transmission Date: 20170207
  Serious: Yes (Other)
  Sender: FDA-Public Use
  Company Number: US-ABBVIE-16K-163-1789053-00

PATIENT
  Sex: Male

DRUGS (2)
  1. GENGRAF [Suspect]
     Active Substance: CYCLOSPORINE
     Indication: PRODUCT USED FOR UNKNOWN INDICATION
     Route: 048
     Dates: start: 20160728, end: 2016
  2. HUMIRA [Suspect]
     Active Substance: ADALIMUMAB
     Indication: PSORIASIS
     Route: 058

REACTIONS (4)
  - Drug ineffective [Unknown]
  - Skin burning sensation [Unknown]
  - Pruritus [Unknown]
  - Renal failure [Unknown]

NARRATIVE: CASE EVENT DATE: 2016
